FAERS Safety Report 7347455-0 (Version None)
Quarter: 2011Q1

REPORT INFORMATION
  Report Type: 
  Country: None (occurrence: None)
  Receive Date: 20110311
  Receipt Date: 20110303
  Transmission Date: 20110831
  Serious: Yes (Other)
  Sender: FDA-Public Use
  Company Number: PHHY2011DE17879

PATIENT
  Sex: Male

DRUGS (2)
  1. TOBI [Suspect]
     Dosage: 1 DF, BID
  2. BETA RECEPTOR STIMULANTS [Concomitant]

REACTIONS (3)
  - DEAFNESS [None]
  - HEARING AID USER [None]
  - BRONCHOSPASM [None]
